FAERS Safety Report 8239670-9 (Version None)
Quarter: 2012Q1

REPORT INFORMATION
  Report Type: 
  Country: None (occurrence: None)
  Receive Date: 20120328
  Receipt Date: 20120320
  Transmission Date: 20120608
  Serious: Yes (Other)
  Sender: FDA-Public Use
  Company Number: US-US-EMD SERONO, INC.-7121099

PATIENT
  Sex: Female

DRUGS (3)
  1. SPIRONOLACTONE [Concomitant]
     Indication: BLOOD PRESSURE
  2. REBIF [Suspect]
     Indication: PRODUCT USED FOR UNKNOWN INDICATION
     Route: 058
     Dates: start: 20110620, end: 20111206
  3. SPIRONOLACTONE [Concomitant]
     Indication: HORMONE LEVEL ABNORMAL
     Dates: start: 20010101

REACTIONS (5)
  - HALLUCINATION, AUDITORY [None]
  - DRUG HYPERSENSITIVITY [None]
  - SUICIDAL IDEATION [None]
  - DEPRESSION [None]
  - INFLUENZA [None]
